FAERS Safety Report 8095638-7 (Version None)
Quarter: 2012Q1

REPORT INFORMATION
  Report Type: 
  Country: None (occurrence: None)
  Receive Date: 20120129
  Receipt Date: 20111215
  Transmission Date: 20120608
  Serious: No
  Sender: FDA-Public Use
  Company Number: US-ABBOTT-11P-163-0883897-00

PATIENT
  Age: 42 Year
  Sex: Female

DRUGS (4)
  1. SYNTHROID [Concomitant]
     Indication: THYROID DISORDER
     Dosage: 200/25MG
  2. SPIRONOLACTONE [Concomitant]
     Indication: HYPERTRICHOSIS
  3. HUMIRA [Suspect]
     Indication: PSORIASIS
     Dates: start: 20110818
  4. GLUCOPHAGE [Concomitant]
     Indication: POLYCYSTIC OVARIES

REACTIONS (1)
  - CONDITION AGGRAVATED [None]
